FAERS Safety Report 22158645 (Version 1)
Quarter: 2023Q1

REPORT INFORMATION
  Report Type: Spontaneous
  Country: JP (occurrence: JP)
  Receive Date: 20230331
  Receipt Date: 20230331
  Transmission Date: 20230418
  Serious: Yes (Hospitalization, Other)
  Sender: FDA-Public Use
  Company Number: JP-BRISTOL-MYERS SQUIBB COMPANY-2023-043299

PATIENT
  Age: 75 Year
  Sex: Male

DRUGS (3)
  1. ELIQUIS [Suspect]
     Active Substance: APIXABAN
     Indication: Cerebrovascular accident prophylaxis
     Route: 048
  2. GEMCITABINE [Concomitant]
     Active Substance: GEMCITABINE
     Indication: Pancreatic carcinoma
  3. ABRAXANE [Concomitant]
     Active Substance: PACLITAXEL
     Indication: Pancreatic carcinoma

REACTIONS (3)
  - Haematemesis [Unknown]
  - Shock haemorrhagic [Unknown]
  - Haemobilia [Recovered/Resolved]
